FAERS Safety Report 7413434-8 (Version None)
Quarter: 2011Q2

REPORT INFORMATION
  Report Type: 
  Country: None (occurrence: None)
  Receive Date: 20110413
  Receipt Date: 20110404
  Transmission Date: 20111010
  Serious: Yes (Other)
  Sender: FDA-Public Use
  Company Number: PHHY2011US26576

PATIENT
  Sex: Male

DRUGS (3)
  1. GILENYA [Suspect]
     Indication: MULTIPLE SCLEROSIS
     Dosage: 0.5 MG, DAILY
     Route: 048
     Dates: start: 20110329, end: 20110329
  2. OSTEO BI-FLEX [Concomitant]
     Dosage: UNK, QD
     Dates: start: 20100101
  3. MULTI-VITAMINS [Concomitant]
     Dosage: UNK, QD
     Dates: start: 20090101

REACTIONS (2)
  - LOSS OF CONSCIOUSNESS [None]
  - BRADYCARDIA [None]
